FAERS Safety Report 6173992-0 (Version None)
Quarter: 2009Q2

REPORT INFORMATION
  Report Type: 
  Country: None (occurrence: None)
  Receive Date: 20090430
  Receipt Date: 20080822
  Transmission Date: 20091009
  Serious: No
  Sender: FDA-Public Use
  Company Number: US-ASTRAZENECA-2005UW00841

PATIENT
  Age: 84 Year
  Sex: Female
  Weight: 67.1 kg

DRUGS (4)
  1. NEXIUM [Suspect]
     Indication: GASTROOESOPHAGEAL REFLUX DISEASE
     Route: 048
  2. MULTI-VITAMIN [Concomitant]
  3. OSCAL [Concomitant]
  4. FIORICET [Concomitant]
     Indication: HEADACHE

REACTIONS (7)
  - BACK PAIN [None]
  - CONSTIPATION [None]
  - DRUG INEFFECTIVE [None]
  - EAR DISCOMFORT [None]
  - HEADACHE [None]
  - HYPOAESTHESIA [None]
  - THROAT IRRITATION [None]
